FAERS Safety Report 23572827 (Version 1)
Quarter: 2024Q1

REPORT INFORMATION
  Report Type: Spontaneous
  Country: US (occurrence: US)
  Receive Date: 20240227
  Receipt Date: 20240227
  Transmission Date: 20240410
  Serious: No
  Sender: FDA-Public Use
  Company Number: US-PRIMUS-2023-US-038472

PATIENT
  Age: 54 Year
  Sex: Female

DRUGS (8)
  1. SERNIVO [Suspect]
     Active Substance: BETAMETHASONE DIPROPIONATE
     Indication: Psoriasis
     Dosage: UNSPECIFIED
     Route: 061
     Dates: start: 20161121, end: 20170216
  2. FLURANDRENOLIDE [Suspect]
     Active Substance: FLURANDRENOLIDE
     Dosage: UNSPECIFIED
     Route: 061
  3. IXEKIZUMAB [Suspect]
     Active Substance: IXEKIZUMAB
     Indication: Psoriasis
     Dosage: UNSPECIFIED
  4. FLUCONAZOLE [Suspect]
     Active Substance: FLUCONAZOLE
     Dosage: UNSPECIFIED
     Route: 061
     Dates: start: 20180410
  5. KETOCONAZOLE [Suspect]
     Active Substance: KETOCONAZOLE
     Dosage: UNSPECIFIED
     Route: 061
     Dates: start: 20181004
  6. DESOXIMETASONE [Suspect]
     Active Substance: DESOXIMETASONE
     Dosage: UNSPECIFIED
     Route: 061
     Dates: end: 20161121
  7. HYDROCORTISONE [Suspect]
     Active Substance: HYDROCORTISONE
     Dosage: UNSPECIFIED
     Route: 061
     Dates: start: 20180410
  8. BENZOIC ACID\SALICYLIC ACID\SULFUR [Suspect]
     Active Substance: BENZOIC ACID\SALICYLIC ACID\SULFUR
     Route: 061

REACTIONS (1)
  - Drug ineffective [Recovered/Resolved]
